FAERS Safety Report 12239757 (Version 1)
Quarter: 2016Q2

REPORT INFORMATION
  Report Type: Spontaneous
  Country: US (occurrence: US)
  Receive Date: 20160405
  Receipt Date: 20160405
  Transmission Date: 20160815
  Serious: No
  Sender: FDA-Public Use
  Company Number: US-ROCHE-1517389

PATIENT
  Sex: Male

DRUGS (2)
  1. ERIVEDGE [Suspect]
     Active Substance: VISMODEGIB
     Indication: BASAL CELL CARCINOMA
     Route: 065
     Dates: start: 20141112, end: 201502
  2. COUMADIN [Interacting]
     Active Substance: WARFARIN SODIUM
     Indication: ATRIAL FIBRILLATION
     Route: 065

REACTIONS (8)
  - Gait disturbance [Unknown]
  - Anticoagulation drug level increased [Not Recovered/Not Resolved]
  - Ageusia [Recovering/Resolving]
  - Gait disturbance [Not Recovered/Not Resolved]
  - Drug interaction [Unknown]
  - Arthralgia [Not Recovered/Not Resolved]
  - Alopecia [Recovering/Resolving]
  - Fatigue [Not Recovered/Not Resolved]
